FAERS Safety Report 12637837 (Version 1)
Quarter: 2016Q3

REPORT INFORMATION
  Report Type: Spontaneous
  Country: US (occurrence: US)
  Receive Date: 20160809
  Receipt Date: 20160809
  Transmission Date: 20161109
  Serious: No
  Sender: FDA-Public Use
  Company Number: US-PFIZER INC-2016350582

PATIENT
  Sex: Male

DRUGS (2)
  1. SEROMYCIN [Suspect]
     Active Substance: CYCLOSERINE
     Indication: NEOPLASM MALIGNANT
     Dosage: UNK
  2. DOCETAXEL. [Suspect]
     Active Substance: DOCETAXEL
     Indication: NEOPLASM MALIGNANT
     Dosage: UNK

REACTIONS (2)
  - Disease progression [Unknown]
  - Neoplasm malignant [Unknown]
